FAERS Safety Report 9538743 (Version 1)
Quarter: 2013Q3

REPORT INFORMATION
  Report Type: Spontaneous
  Country: US (occurrence: US)
  Receive Date: 20130920
  Receipt Date: 20130920
  Transmission Date: 20140515
  Serious: No
  Sender: FDA-Public Use
  Company Number: US-PFIZER INC-2013264005

PATIENT
  Age: 66 Year
  Sex: Male

DRUGS (3)
  1. VIAGRA [Suspect]
     Indication: ERECTILE DYSFUNCTION
     Dosage: UNK (BY BREAKING THE TABLET OF 100MG INTO PIECES), AS NEEDED
     Route: 048
     Dates: start: 200910
  2. LOSARTAN [Concomitant]
     Indication: BLOOD PRESSURE ABNORMAL
     Dosage: 100 MG, 1X/DAY
  3. PRAVASTATIN [Concomitant]
     Indication: BLOOD CHOLESTEROL ABNORMAL
     Dosage: 40 MG, 1X/DAY

REACTIONS (3)
  - Vision blurred [Unknown]
  - Abnormal sensation in eye [Unknown]
  - Photopsia [Unknown]
